FAERS Safety Report 6098796-9 (Version None)
Quarter: 2009Q1

REPORT INFORMATION
  Report Type: 
  Country: None (occurrence: None)
  Receive Date: 20090302
  Receipt Date: 20090220
  Transmission Date: 20090719
  Serious: Yes (Other)
  Sender: FDA-Public Use
  Company Number: BE-PFIZER INC-2009170073

PATIENT

DRUGS (9)
  1. CELEBREX [Suspect]
     Indication: TENDONITIS
     Dosage: 200 MG, 1X/DAY
     Route: 048
  2. VENLAFAXINE [Suspect]
     Dosage: 75 MG, 1X/DAY
  3. COVERSYL [Concomitant]
     Dosage: UNK
  4. ATACAND [Concomitant]
     Dosage: UNK
  5. SPIRONOLACTONE [Concomitant]
     Dosage: UNK
  6. SINTROM [Concomitant]
     Dosage: UNK
  7. LANOXIN [Concomitant]
     Dosage: UNK
  8. BISOPROLOL [Concomitant]
     Dosage: UNK
  9. CRESTOR [Concomitant]
     Dosage: UNK

REACTIONS (1)
  - HALLUCINATION [None]
